FAERS Safety Report 14695660 (Version 1)
Quarter: 2018Q1

REPORT INFORMATION
  Report Type: Spontaneous
  Country: TW (occurrence: TW)
  Receive Date: 20180329
  Receipt Date: 20180329
  Transmission Date: 20180509
  Serious: Yes (Other)
  Sender: FDA-Public Use
  Company Number: TW-ELI_LILLY_AND_COMPANY-TW201803007942

PATIENT
  Age: 88 Year
  Sex: Female

DRUGS (1)
  1. TRULICITY [Suspect]
     Active Substance: DULAGLUTIDE
     Indication: PRODUCT USED FOR UNKNOWN INDICATION
     Dosage: UNK, UNKNOWN
     Route: 065
     Dates: start: 20180131

REACTIONS (10)
  - Hepatic steatosis [Unknown]
  - Leukocytosis [Unknown]
  - Chronic kidney disease [Unknown]
  - Biliary dilatation [Unknown]
  - Vomiting [Unknown]
  - Somnolence [Unknown]
  - Disorientation [Unknown]
  - Muscular weakness [Unknown]
  - Nausea [Unknown]
  - Loss of consciousness [Unknown]

NARRATIVE: CASE EVENT DATE: 20180131
